FAERS Safety Report 5955301-2 (Version None)
Quarter: 2008Q4

REPORT INFORMATION
  Report Type: 
  Country: None (occurrence: None)
  Receive Date: 20081117
  Receipt Date: 20081106
  Transmission Date: 20090506
  Serious: Yes (Hospitalization, Disabling)
  Sender: FDA-Public Use
  Company Number: US-MERCK-0807USA05263

PATIENT
  Age: 70 Year
  Sex: Female
  Weight: 73 kg

DRUGS (5)
  1. FOSAMAX [Suspect]
     Indication: OSTEOPOROSIS
     Route: 048
     Dates: start: 20040901, end: 20060701
  2. FOSAMAX [Suspect]
     Indication: BONE DISORDER
     Route: 048
     Dates: start: 20040901, end: 20060701
  3. LANOXIN [Concomitant]
     Indication: HEART RATE INCREASED
     Route: 065
     Dates: start: 19960101, end: 20060101
  4. LANOXIN [Concomitant]
     Indication: SUPRAVENTRICULAR TACHYCARDIA
     Route: 065
     Dates: start: 19960101, end: 20060101
  5. VERAPAMIL [Concomitant]
     Indication: SUPRAVENTRICULAR TACHYCARDIA
     Route: 065

REACTIONS (16)
  - APHTHOUS STOMATITIS [None]
  - ARTHROPATHY [None]
  - CHRONIC SINUSITIS [None]
  - CONSTIPATION [None]
  - DENTAL CARIES [None]
  - FAILURE OF IMPLANT [None]
  - HYPERCHOLESTEROLAEMIA [None]
  - IMPAIRED HEALING [None]
  - NEUROPATHY PERIPHERAL [None]
  - OROANTRAL FISTULA [None]
  - OSTEOMYELITIS [None]
  - OSTEONECROSIS [None]
  - SKIN PAPILLOMA [None]
  - TOOTH FRACTURE [None]
  - TOOTHACHE [None]
  - VENTRICULAR TACHYCARDIA [None]
